FAERS Safety Report 4299597-4 (Version None)
Quarter: 2004Q1

REPORT INFORMATION
  Report Type: 
  Country: None (occurrence: None)
  Receive Date: 20040217
  Receipt Date: 20040203
  Transmission Date: 20041129
  Serious: Yes (Life-Threatening, Hospitalization)
  Sender: FDA-Public Use
  Company Number: 2004-00469

PATIENT
  Age: 48 Year
  Sex: Male
  Weight: 59.9 kg

DRUGS (12)
  1. INFED [Suspect]
     Indication: IRON DEFICIENCY ANAEMIA
     Dosage: 16.7 MG, SINGLE, INTRAVENOUS
     Route: 042
     Dates: start: 20040201, end: 20040201
  2. LANTUS [Concomitant]
  3. NOVOLOG [Concomitant]
  4. AMBISOME [Concomitant]
  5. PULMOZYME [Concomitant]
  6. MORPHINE [Concomitant]
  7. PROVENTIL [Concomitant]
  8. BENADRYL ^WARNER LAMBERT^ [Concomitant]
  9. PROCRIT (ERYTHROPOIETIN) [Concomitant]
  10. LORTAB (PARACETAMOL.) [Concomitant]
  11. K-DUR 10 [Concomitant]
  12. LASIX [Concomitant]

REACTIONS (17)
  - AGITATION [None]
  - BLOOD PRESSURE DECREASED [None]
  - BLOOD PRESSURE INCREASED [None]
  - CAROTID ARTERY STENOSIS [None]
  - CEREBRAL INFARCTION [None]
  - CEREBROVASCULAR ACCIDENT [None]
  - COMPUTERISED TOMOGRAM ABNORMAL [None]
  - DIABETIC KETOACIDOSIS [None]
  - DYSPNOEA [None]
  - HEMIPARESIS [None]
  - HYPOGLYCAEMIA [None]
  - HYPOXIC ENCEPHALOPATHY [None]
  - ISCHAEMIA [None]
  - PLEURAL EFFUSION [None]
  - PNEUMONIA FUNGAL [None]
  - POST PROCEDURAL COMPLICATION [None]
  - RESPIRATORY DISTRESS [None]
